FAERS Safety Report 21905655 (Version 1)
Quarter: 2023Q1

REPORT INFORMATION
  Report Type: Spontaneous
  Country: JP (occurrence: JP)
  Receive Date: 20230124
  Receipt Date: 20230124
  Transmission Date: 20230417
  Serious: Yes (Other)
  Sender: FDA-Public Use
  Company Number: JP-BAYER-2023A005134

PATIENT
  Age: 75 Year
  Sex: Male

DRUGS (1)
  1. NUBEQA [Suspect]
     Active Substance: DAROLUTAMIDE
     Indication: Hormone-refractory prostate cancer
     Dosage: DAILY DOSE 1200 MG
     Route: 048
     Dates: start: 20221014, end: 20230112

REACTIONS (4)
  - Hormone-refractory prostate cancer [None]
  - Metastases to lymph nodes [None]
  - Prostatic specific antigen increased [None]
  - Drug ineffective [Recovering/Resolving]

NARRATIVE: CASE EVENT DATE: 20221201
